FAERS Safety Report 20048976 (Version 1)
Quarter: 2021Q4

REPORT INFORMATION
  Report Type: Report from Study
  Country: JP (occurrence: JP)
  Receive Date: 20211109
  Receipt Date: 20211109
  Transmission Date: 20220303
  Serious: Yes (Hospitalization)
  Sender: FDA-Public Use
  Company Number: JP-JNJFOC-A-CH2018-180216

PATIENT
  Age: 77 Year
  Sex: Female

DRUGS (38)
  1. OPSUMIT [Suspect]
     Active Substance: MACITENTAN
     Indication: Pulmonary arterial hypertension
     Dosage: 10 MG, OD
     Route: 048
     Dates: start: 20170112
  2. UPTRAVI [Suspect]
     Active Substance: SELEXIPAG
     Indication: Pulmonary arterial hypertension
     Dosage: UNK
     Route: 048
     Dates: start: 20171016
  3. UPTRAVI [Suspect]
     Active Substance: SELEXIPAG
     Route: 048
  4. UPTRAVI [Suspect]
     Active Substance: SELEXIPAG
     Dosage: 3.2 MG, QD
     Route: 048
     Dates: start: 20171108
  5. UPTRAVI [Suspect]
     Active Substance: SELEXIPAG
     Dosage: 3.2 MG, BID
     Route: 048
     Dates: start: 20171114
  6. UPTRAVI [Suspect]
     Active Substance: SELEXIPAG
     Dosage: (0.2 MG/12 HOURS)
     Route: 048
     Dates: start: 20171016, end: 20171016
  7. UPTRAVI [Suspect]
     Active Substance: SELEXIPAG
     Dosage: (0.6 MG/12 HOURS)
     Route: 048
     Dates: start: 20171018, end: 20171019
  8. UPTRAVI [Suspect]
     Active Substance: SELEXIPAG
     Dosage: (0.8 MG/12 HOURS)
     Route: 048
     Dates: start: 20171020, end: 20171022
  9. UPTRAVI [Suspect]
     Active Substance: SELEXIPAG
     Dosage: (1.0 MG/12 HOURS)
     Route: 048
     Dates: start: 20171023, end: 20171024
  10. UPTRAVI [Suspect]
     Active Substance: SELEXIPAG
     Dosage: (1.2 MG/12 HOURS)
     Route: 048
     Dates: start: 20171025, end: 20171026
  11. UPTRAVI [Suspect]
     Active Substance: SELEXIPAG
     Dosage: (1.4 MG/12 HOURS)
     Route: 048
     Dates: start: 20171027, end: 20171029
  12. UPTRAVI [Suspect]
     Active Substance: SELEXIPAG
     Route: 048
     Dates: start: 20171030
  13. REVATIO [Concomitant]
     Active Substance: SILDENAFIL CITRATE
     Indication: Pulmonary arterial hypertension
     Dosage: 60 MG, QD
     Route: 048
  14. REVATIO [Concomitant]
     Active Substance: SILDENAFIL CITRATE
     Route: 048
  15. PREDONINE [Concomitant]
     Active Substance: PREDNISOLONE
     Indication: Sjogren^s syndrome
     Dosage: 5 MG, QD
  16. PREDONINE [Concomitant]
     Active Substance: PREDNISOLONE
     Route: 048
     Dates: start: 20070909
  17. LEVOTHYROXINE SODIUM [Concomitant]
     Active Substance: LEVOTHYROXINE SODIUM
     Indication: Autoimmune thyroiditis
     Dosage: 125 UG, QD
  18. LEVOTHYROXINE SODIUM [Concomitant]
     Active Substance: LEVOTHYROXINE SODIUM
     Indication: Goitre
     Route: 048
     Dates: start: 20070909
  19. DIGOXIN [Concomitant]
     Active Substance: DIGOXIN
     Indication: Right ventricular failure
     Dosage: 1 DF, QD
  20. DIGOXIN [Concomitant]
     Active Substance: DIGOXIN
     Route: 048
  21. SPIRONOLACTONE [Concomitant]
     Active Substance: SPIRONOLACTONE
     Indication: Right ventricular failure
     Dosage: 25 MG, QD
     Route: 048
     Dates: start: 20070909
  22. LANSOPRAZOLE [Concomitant]
     Active Substance: LANSOPRAZOLE
     Indication: Chronic gastritis
     Dosage: 15 MG, QD
     Route: 048
     Dates: start: 20170909
  23. SULFAMETHOXAZOLE\TRIMETHOPRIM [Concomitant]
     Active Substance: SULFAMETHOXAZOLE\TRIMETHOPRIM
     Indication: Prophylaxis
     Route: 048
     Dates: start: 20101115
  24. ATORVASTATIN [Concomitant]
     Active Substance: ATORVASTATIN
     Indication: Dyslipidaemia
     Dosage: 10 MG, QD
     Route: 048
     Dates: start: 20101115
  25. ATORVASTATIN [Concomitant]
     Active Substance: ATORVASTATIN
     Indication: Hyperlipidaemia
  26. MAGNESIUM OXIDE [Concomitant]
     Active Substance: MAGNESIUM OXIDE
     Indication: Constipation
     Dosage: 1 G, QD
  27. MAGNESIUM OXIDE [Concomitant]
     Active Substance: MAGNESIUM OXIDE
     Route: 048
     Dates: start: 20070909
  28. ELDECALCITOL [Concomitant]
     Active Substance: ELDECALCITOL
     Indication: Osteoporosis
     Dosage: 0.5 UG, QD
  29. ELDECALCITOL [Concomitant]
     Active Substance: ELDECALCITOL
     Route: 048
  30. LUNESTA [Concomitant]
     Active Substance: ESZOPICLONE
     Indication: Insomnia
     Route: 048
     Dates: start: 2014
  31. TORSEMIDE [Concomitant]
     Active Substance: TORSEMIDE
     Indication: Right ventricular failure
     Dosage: 16 MG, QD
  32. TORSEMIDE [Concomitant]
     Active Substance: TORSEMIDE
     Route: 048
     Dates: start: 20070909
  33. BERAPROST SODIUM [Concomitant]
     Active Substance: BERAPROST SODIUM
     Indication: Pulmonary arterial hypertension
     Route: 048
     Dates: start: 20140904, end: 20171015
  34. OXYGEN [Concomitant]
     Active Substance: OXYGEN
     Route: 055
  35. METHYLCOBALAMIN [Concomitant]
     Active Substance: METHYLCOBALAMIN
     Indication: Herpes zoster
     Dosage: 0.75 UG, QD
  36. SULFAMETHOXAZOLE\TRIMETHOPRIM [Concomitant]
     Active Substance: SULFAMETHOXAZOLE\TRIMETHOPRIM
     Dosage: 1 DF, QD
  37. ZOPICLONE [Concomitant]
     Active Substance: ZOPICLONE
  38. DIGOXIN [Concomitant]
     Active Substance: DIGOXIN

REACTIONS (2)
  - Herpes zoster [Recovered/Resolved]
  - Headache [Recovered/Resolved]

NARRATIVE: CASE EVENT DATE: 20171019
